FAERS Safety Report 7772575-6 (Version None)
Quarter: 2011Q3

REPORT INFORMATION
  Report Type: 
  Country: None (occurrence: None)
  Receive Date: 20110922
  Receipt Date: 20110916
  Transmission Date: 20111222
  Serious: Yes (Other)
  Sender: FDA-Public Use
  Company Number: US-ABBOTT-11P-163-0856107-00

PATIENT
  Age: 73 Year
  Sex: Male

DRUGS (13)
  1. HYDROCODONE [Concomitant]
     Indication: PAIN
  2. HUMIRA [Suspect]
     Route: 058
  3. CILOSTAZOL [Concomitant]
     Indication: CARDIOVASCULAR DISORDER
  4. PRADAXA [Concomitant]
     Indication: ANTICOAGULANT THERAPY
  5. PLAVIX [Concomitant]
     Indication: PRODUCT USED FOR UNKNOWN INDICATION
  6. FLOMAX [Concomitant]
     Indication: POLLAKIURIA
  7. AVODART [Concomitant]
     Indication: POLLAKIURIA
  8. GABAPENTIN [Concomitant]
     Indication: PRODUCT USED FOR UNKNOWN INDICATION
  9. LORTAB [Concomitant]
     Indication: PRODUCT USED FOR UNKNOWN INDICATION
  10. LISINOPRIL [Concomitant]
     Indication: HYPERTENSION
     Dosage: DAILY
  11. TRAMADOL HCL [Concomitant]
     Indication: PAIN
  12. HUMIRA [Suspect]
     Indication: RHEUMATOID ARTHRITIS
     Dates: start: 20050101
  13. NEXIUM [Concomitant]
     Indication: GASTROOESOPHAGEAL REFLUX DISEASE

REACTIONS (10)
  - OEDEMA PERIPHERAL [None]
  - GASTROINTESTINAL INFECTION [None]
  - DRUG INEFFECTIVE [None]
  - PAIN IN EXTREMITY [None]
  - DIARRHOEA [None]
  - MYOCARDIAL INFARCTION [None]
  - MUSCULOSKELETAL STIFFNESS [None]
  - CARDIAC DISORDER [None]
  - BLOOD CHOLESTEROL INCREASED [None]
  - INAPPROPRIATE SCHEDULE OF DRUG ADMINISTRATION [None]
